FAERS Safety Report 6721824-1 (Version None)
Quarter: 2010Q2

REPORT INFORMATION
  Report Type: 
  Country: None (occurrence: None)
  Receive Date: 20100512
  Receipt Date: 20100503
  Transmission Date: 20101027
  Serious: Yes (Death)
  Sender: FDA-Public Use
  Company Number: US-ABBOTT-10P-163-0641994-00

PATIENT
  Age: 76 Year
  Sex: Male

DRUGS (13)
  1. SYNTHROID [Suspect]
     Indication: DRUG USE FOR UNKNOWN INDICATION
  2. FUROSEMIDE [Concomitant]
     Indication: DRUG USE FOR UNKNOWN INDICATION
  3. LORTAB [Concomitant]
     Indication: DRUG USE FOR UNKNOWN INDICATION
  4. HYDROXYZINE [Concomitant]
     Indication: DRUG USE FOR UNKNOWN INDICATION
  5. LOVASTATIN [Concomitant]
     Indication: DRUG USE FOR UNKNOWN INDICATION
  6. NAMENDA [Concomitant]
     Indication: DRUG USE FOR UNKNOWN INDICATION
  7. POTASSIUM CHLORIDE [Concomitant]
     Indication: DRUG USE FOR UNKNOWN INDICATION
  8. PREVACID [Concomitant]
     Indication: DRUG USE FOR UNKNOWN INDICATION
  9. RISPERDAL [Concomitant]
     Indication: DRUG USE FOR UNKNOWN INDICATION
  10. CALCIUM [Concomitant]
     Indication: DRUG USE FOR UNKNOWN INDICATION
  11. EXELON [Concomitant]
     Indication: DRUG USE FOR UNKNOWN INDICATION
  12. PROZAC [Concomitant]
     Indication: DRUG USE FOR UNKNOWN INDICATION
  13. DOXAZOSIN METHYLATE [Concomitant]
     Indication: DRUG USE FOR UNKNOWN INDICATION

REACTIONS (1)
  - MALAISE [None]
